FAERS Safety Report 9646228 (Version 3)
Quarter: 2013Q4

REPORT INFORMATION
  Report Type: Report from Study
  Country: US (occurrence: US)
  Receive Date: 20131025
  Receipt Date: 20131204
  Transmission Date: 20140711
  Serious: Yes (Hospitalization)
  Sender: FDA-Public Use
  Company Number: US-ABBVIE-13P-163-1153631-00

PATIENT
  Age: 39 Year
  Sex: Female

DRUGS (7)
  1. HUMIRA [Suspect]
     Indication: CROHN^S DISEASE
     Dates: start: 20130816, end: 20130816
  2. HUMIRA [Suspect]
     Dates: start: 20130831, end: 20130831
  3. HUMIRA [Suspect]
     Dates: start: 20130914
  4. HUMIRA [Suspect]
     Dates: start: 20131012
  5. LEXAPRO [Concomitant]
     Indication: DEPRESSION
  6. ALPRAZOLAM [Concomitant]
     Indication: ANXIETY
  7. NEURONTIN [Concomitant]
     Indication: SCIATICA

REACTIONS (12)
  - Rectal haemorrhage [Recovering/Resolving]
  - Crohn^s disease [Recovering/Resolving]
  - Injection site pain [Recovering/Resolving]
  - Injection site pain [Recovering/Resolving]
  - Abdominal pain [Recovering/Resolving]
  - Gastric disorder [Recovering/Resolving]
  - Abdominal pain upper [Recovering/Resolving]
  - Diarrhoea [Recovering/Resolving]
  - Nausea [Recovering/Resolving]
  - Insomnia [Recovering/Resolving]
  - Diarrhoea haemorrhagic [Unknown]
  - Crohn^s disease [Unknown]
